FAERS Safety Report 6392544-0 (Version None)
Quarter: 2009Q4

REPORT INFORMATION
  Report Type: 
  Country: None (occurrence: None)
  Receive Date: 20091007
  Receipt Date: 20090928
  Transmission Date: 20100525
  Serious: Yes (Hospitalization, Disabling, Other)
  Sender: FDA-Public Use
  Company Number: US-MERCK-0907USA01051

PATIENT
  Age: 66 Year
  Sex: Female
  Weight: 65 kg

DRUGS (3)
  1. FOSAMAX [Suspect]
     Indication: OSTEOPOROSIS
     Route: 048
     Dates: start: 20010101, end: 20061001
  2. FOSAMAX [Suspect]
     Route: 048
     Dates: start: 20010101, end: 20061201
  3. FOSAMAX [Suspect]
     Route: 048
     Dates: start: 20010101, end: 20070201

REACTIONS (32)
  - ABSCESS [None]
  - ASTHENIA [None]
  - CAROTID BRUIT [None]
  - CELLULITIS [None]
  - DENTAL CARIES [None]
  - DERMATITIS CONTACT [None]
  - DYSPHAGIA [None]
  - GASTROOESOPHAGEAL REFLUX DISEASE [None]
  - GINGIVITIS [None]
  - HYPERLIPIDAEMIA [None]
  - HYPERTENSION [None]
  - HYPOTHYROIDISM [None]
  - IMPAIRED HEALING [None]
  - INFECTION [None]
  - JAW DISORDER [None]
  - LABYRINTHITIS [None]
  - LIP ULCERATION [None]
  - MOUTH ULCERATION [None]
  - MUCOSAL INFLAMMATION [None]
  - OEDEMA MOUTH [None]
  - ORAL INFECTION [None]
  - ORAL TORUS [None]
  - OSTEOMYELITIS [None]
  - OSTEOMYELITIS CHRONIC [None]
  - OSTEONECROSIS [None]
  - OSTEOPENIA [None]
  - PALPITATIONS [None]
  - PARAESTHESIA [None]
  - PULMONARY MASS [None]
  - RED BLOOD CELL SEDIMENTATION RATE INCREASED [None]
  - STOMATITIS [None]
  - TRACHEOBRONCHITIS [None]
